FAERS Safety Report 4465289-1 (Version None)
Quarter: 2004Q4

REPORT INFORMATION
  Report Type: 
  Country: None (occurrence: None)
  Receive Date: 20041004
  Receipt Date: 20040907
  Transmission Date: 20050328
  Serious: No
  Sender: FDA-Public Use
  Company Number: JP-MERCK-0409USA00584

PATIENT
  Age: 65 Year
  Sex: Male
  Weight: 53 kg

DRUGS (4)
  1. FOSAMAX [Suspect]
     Indication: OSTEOPOROSIS
     Route: 048
     Dates: start: 20040823, end: 20040826
  2. TAKEPRON [Concomitant]
     Indication: GASTRIC ULCER
     Route: 048
     Dates: start: 20040810
  3. PREDONINE [Concomitant]
     Indication: SARCOIDOSIS
     Route: 048
     Dates: start: 20040810, end: 20040826
  4. PREDONINE [Concomitant]
     Route: 048
     Dates: start: 20040827

REACTIONS (3)
  - DRUG ERUPTION [None]
  - EXANTHEM [None]
  - RASH GENERALISED [None]
